FAERS Safety Report 21108844 (Version 4)
Quarter: 2022Q4

REPORT INFORMATION
  Report Type: Report from Study
  Country: US (occurrence: US)
  Receive Date: 20220721
  Receipt Date: 20221025
  Transmission Date: 20230112
  Serious: No
  Sender: FDA-Public Use
  Company Number: US-NOVARTISTESTPH-NVSC2022US164755

PATIENT
  Age: 72 Year
  Sex: Male

DRUGS (1)
  1. COSENTYX [Suspect]
     Active Substance: SECUKINUMAB
     Indication: Psoriasis
     Dosage: 300 MG, QW, (Q WEEK FOR FIVE WEEKS AND Q 4 WEEKS)
     Route: 058
     Dates: start: 20220614, end: 20220803

REACTIONS (5)
  - Cough [Unknown]
  - Fatigue [Unknown]
  - Pyrexia [Unknown]
  - Nasal congestion [Unknown]
  - Upper respiratory tract infection [Unknown]

NARRATIVE: CASE EVENT DATE: 20220715
